FAERS Safety Report 22287437 (Version 1)
Quarter: 2023Q2

REPORT INFORMATION
  Report Type: Spontaneous
  Country: MY (occurrence: MY)
  Receive Date: 20230505
  Receipt Date: 20230505
  Transmission Date: 20230721
  Serious: Yes (Other)
  Sender: FDA-Public Use
  Company Number: MY-BoehringerIngelheim-2023-BI-235716

PATIENT
  Age: 77 Year
  Sex: Female

DRUGS (2)
  1. GLYXAMBI [Suspect]
     Active Substance: EMPAGLIFLOZIN\LINAGLIPTIN
     Indication: Glycosylated haemoglobin
  2. INSULIN NOS [Concomitant]
     Active Substance: INSULIN NOS
     Indication: Diabetes mellitus

REACTIONS (2)
  - Osteomyelitis [Unknown]
  - Fournier^s gangrene [Unknown]

NARRATIVE: CASE EVENT DATE: 20230101
